FAERS Safety Report 7304262-2 (Version None)
Quarter: 2011Q1

REPORT INFORMATION
  Report Type: 
  Country: None (occurrence: None)
  Receive Date: 20110221
  Receipt Date: 20110208
  Transmission Date: 20110831
  Serious: Yes (Other)
  Sender: FDA-Public Use
  Company Number: PHHY2011US11808

PATIENT
  Sex: Female

DRUGS (6)
  1. GABAPENTIN [Concomitant]
  2. VITAMIN D [Concomitant]
  3. LIPITOR [Concomitant]
     Dosage: 10 MG, QD
  4. MULTI-VITAMIN [Concomitant]
  5. FEMARA [Suspect]
  6. CALCIUM CITRATE [Concomitant]

REACTIONS (5)
  - PAIN [None]
  - PAIN IN EXTREMITY [None]
  - FALL [None]
  - BACK PAIN [None]
  - TRIGGER FINGER [None]
